FAERS Safety Report 7455919-4 (Version None)
Quarter: 2011Q2

REPORT INFORMATION
  Report Type: 
  Country: None (occurrence: None)
  Receive Date: 20110503
  Receipt Date: 20110419
  Transmission Date: 20111010
  Serious: Yes (Other)
  Sender: FDA-Public Use
  Company Number: CA-JNJFOC-20110409074

PATIENT
  Sex: Female
  Weight: 94 kg

DRUGS (14)
  1. CYCLOBENZAPRINE [Concomitant]
     Route: 065
  2. ATENOLOL [Concomitant]
     Route: 065
  3. GOLD [Concomitant]
     Route: 065
  4. PRAVACHOL [Concomitant]
     Route: 065
  5. REMICADE [Suspect]
     Indication: RHEUMATOID ARTHRITIS
     Route: 042
  6. ASPIRIN [Concomitant]
     Route: 065
  7. METFORMIN HYDROCHLORIDE [Concomitant]
     Route: 065
  8. GLYBURIDE [Concomitant]
     Route: 065
  9. UNKNOWN MEDICATION [Concomitant]
     Route: 065
  10. IMURAN [Concomitant]
     Route: 065
  11. PAXIL [Concomitant]
     Route: 065
  12. HYDROCHLOROTHIAZIDE [Concomitant]
     Route: 065
  13. NEXIUM [Concomitant]
     Route: 065
  14. METHOTREXATE [Concomitant]
     Route: 065

REACTIONS (1)
  - EPISTAXIS [None]
